FAERS Safety Report 25076905 (Version 2)
Quarter: 2025Q1

REPORT INFORMATION
  Report Type: Report from Study
  Country: US (occurrence: US)
  Receive Date: 20250314
  Receipt Date: 20250322
  Transmission Date: 20250408
  Serious: Yes (Other)
  Sender: ABBVIE
  Company Number: US-ABBVIE-6167465

PATIENT
  Sex: Male

DRUGS (1)
  1. RINVOQ [Suspect]
     Active Substance: UPADACITINIB
     Indication: Dermatitis atopic
     Route: 048
     Dates: start: 20240801, end: 20250228

REACTIONS (4)
  - Neuroendocrine carcinoma metastatic [Unknown]
  - Bone cancer metastatic [Unknown]
  - Hepatic cancer metastatic [Unknown]
  - Neoplasm malignant [Unknown]
